FAERS Safety Report 12997532 (Version 3)
Quarter: 2016Q4

REPORT INFORMATION
  Report Type: Spontaneous
  Country: JP (occurrence: JP)
  Receive Date: 20161205
  Receipt Date: 20161215
  Transmission Date: 20170207
  Serious: Yes (Other)
  Sender: FDA-Public Use
  Company Number: PHJP2016JP034928

PATIENT
  Sex: Female

DRUGS (1)
  1. ZOLEDRONATE [Suspect]
     Active Substance: ZOLEDRONIC ACID
     Indication: METASTASES TO BONE
     Dosage: UNK
     Route: 042

REACTIONS (6)
  - Periodontitis [Unknown]
  - Osteonecrosis of jaw [Recovering/Resolving]
  - Pain in jaw [Recovering/Resolving]
  - Abscess neck [Recovering/Resolving]
  - Abscess jaw [Recovering/Resolving]
  - Mediastinal abscess [Recovering/Resolving]
